FAERS Safety Report 6159043-2 (Version None)
Quarter: 2009Q2

REPORT INFORMATION
  Report Type: 
  Country: None (occurrence: None)
  Receive Date: 20090417
  Receipt Date: 20090407
  Transmission Date: 20091009
  Serious: Yes (Hospitalization)
  Sender: FDA-Public Use
  Company Number: US-PFIZER INC-2009197629

PATIENT
  Sex: Female
  Weight: 74.38 kg

DRUGS (12)
  1. DOXORUBICIN HCL [Suspect]
     Indication: DIFFUSE LARGE B-CELL LYMPHOMA
     Dosage: 50 MG/M2 ON DAY 1 EVERY 21 DAYS
     Route: 042
     Dates: start: 20090320
  2. CYCLOPHOSPHAMIDE [Suspect]
     Indication: DIFFUSE LARGE B-CELL LYMPHOMA
     Dosage: 750 MG/M2 ON DAY 1 EVERY 21 DAYS
     Route: 042
     Dates: start: 20090320
  3. VINCRISTINE [Suspect]
     Indication: DIFFUSE LARGE B-CELL LYMPHOMA
     Dosage: 1.4 MG/M2 ON DAY 1 EVERY 21 DAYS
     Route: 042
     Dates: start: 20090320
  4. PREDNISONE [Suspect]
     Indication: DIFFUSE LARGE B-CELL LYMPHOMA
     Dosage: 100 MG ON DAY 1 THROUGH 5 EVERY 21 DAYS
     Route: 048
     Dates: start: 20090320
  5. ENZASTAURINE [Suspect]
     Indication: DIFFUSE LARGE B-CELL LYMPHOMA
     Dosage: 1125 MG, 1X/DAY, LOADING DOSE ON DAY 2
     Route: 048
     Dates: start: 20090321, end: 20090321
  6. ENZASTAURINE [Suspect]
     Dosage: 500 MG, 1X/DAY
     Route: 048
     Dates: start: 20090322
  7. RITUXIMAB [Suspect]
     Indication: DIFFUSE LARGE B-CELL LYMPHOMA
     Dosage: 375 MG/M2 ON DAY 1 EVERY 21 DAYS
     Route: 042
     Dates: start: 20090320
  8. LISINOPRIL [Concomitant]
     Dosage: UNK
  9. SIMVASTATIN [Concomitant]
     Dosage: UNK
  10. NEXIUM [Concomitant]
     Dosage: UNK
  11. LEVOTHYROXINE [Concomitant]
     Dosage: UNK
  12. HYDROMORPHONE [Concomitant]
     Dosage: UNK
     Dates: start: 20090312

REACTIONS (2)
  - NAUSEA [None]
  - PAIN [None]
